FAERS Safety Report 10146376 (Version 2)
Quarter: 2015Q1

REPORT INFORMATION
  Report Type: Spontaneous
  Country: US (occurrence: US)
  Receive Date: 20140501
  Receipt Date: 20150310
  Transmission Date: 20150720
  Serious: Yes (Life-Threatening)
  Sender: FDA-Public Use
  Company Number: US-BAYER-2014-062959

PATIENT
  Age: 20 Year
  Sex: Female
  Weight: 100.68 kg

DRUGS (1)
  1. MIRENA [Suspect]
     Active Substance: LEVONORGESTREL
     Indication: CONTRACEPTION
     Dosage: 20 MCG/24HR, CONT
     Route: 015
     Dates: start: 20130709, end: 20130822

REACTIONS (7)
  - Procedural pain [None]
  - Procedural pain [None]
  - General physical health deterioration [None]
  - Abdominal pain lower [None]
  - Injury [None]
  - Device issue [None]
  - Uterine perforation [None]

NARRATIVE: CASE EVENT DATE: 2013
